FAERS Safety Report 5917273-6 (Version None)
Quarter: 2008Q4

REPORT INFORMATION
  Report Type: 
  Country: None (occurrence: None)
  Receive Date: 20081014
  Receipt Date: 20081002
  Transmission Date: 20090506
  Serious: Yes (Other)
  Sender: FDA-Public Use
  Company Number: US-ELI_LILLY_AND_COMPANY-US200810000541

PATIENT
  Sex: Female

DRUGS (8)
  1. FORTEO [Suspect]
     Indication: OSTEOPOROSIS
     Dosage: 20 UG, DAILY (1/D)
     Dates: start: 20080101, end: 20080101
  2. FORTEO [Suspect]
     Dosage: 20 UG, DAILY (1/D)
     Dates: start: 20080930
  3. TOPROL-XL [Concomitant]
  4. ATIVAN [Concomitant]
  5. CALCIUM WITH VITAMIN D [Concomitant]
  6. VITAMIN D [Concomitant]
  7. MAGNESIUM SULFATE [Concomitant]
  8. ACIPHEX [Concomitant]

REACTIONS (8)
  - ABDOMINAL PAIN [None]
  - BLOOD TEST ABNORMAL [None]
  - CATHETERISATION CARDIAC [None]
  - DIZZINESS [None]
  - FAECALOMA [None]
  - HEADACHE [None]
  - HEART RATE INCREASED [None]
  - NAUSEA [None]
